FAERS Safety Report 5079367-X (Version None)
Quarter: 2006Q3

REPORT INFORMATION
  Report Type: 
  Country: None (occurrence: None)
  Receive Date: 20060814
  Receipt Date: 20060718
  Transmission Date: 20061208
  Serious: No
  Sender: FDA-Public Use
  Company Number: PHNR2006AU00935

PATIENT
  Age: 53 Year
  Sex: Female

DRUGS (2)
  1. FEMARA [Suspect]
     Indication: BREAST CANCER
     Dates: start: 20051201, end: 20060201
  2. FEMARA [Suspect]
     Dates: start: 20060421, end: 20060703

REACTIONS (3)
  - ARTHRALGIA [None]
  - FATIGUE [None]
  - HEART RATE IRREGULAR [None]
